FAERS Safety Report 7041375-7 (Version None)
Quarter: 2010Q4

REPORT INFORMATION
  Report Type: 
  Country: None (occurrence: None)
  Receive Date: 20101013
  Receipt Date: 20101011
  Transmission Date: 20110411
  Serious: Yes (Hospitalization, Other)
  Sender: FDA-Public Use
  Company Number: HU-AMGEN-UK375037

PATIENT
  Sex: Male
  Weight: 83 kg

DRUGS (5)
  1. DENOSUMAB [Suspect]
     Indication: METASTASES TO BONE
     Route: 058
     Dates: start: 20080121, end: 20090416
  2. VITAMIN D [Concomitant]
     Route: 042
     Dates: start: 20071220, end: 20090520
  3. TRAMADOL [Concomitant]
     Route: 048
     Dates: start: 20090513
  4. AUGMENTIN '125' [Concomitant]
     Route: 048
     Dates: start: 20090513, end: 20090520
  5. CALCIUM [Concomitant]
     Route: 048
     Dates: start: 20071220, end: 20090520

REACTIONS (1)
  - OSTEONECROSIS OF JAW [None]
